FAERS Safety Report 24123181 (Version 1)
Quarter: 2024Q3

REPORT INFORMATION
  Report Type: Spontaneous
  Country: US (occurrence: US)
  Receive Date: 20240723
  Receipt Date: 20240723
  Transmission Date: 20241016
  Serious: Yes (Hospitalization, Other)
  Sender: SANOFI AVENTIS
  Company Number: US-SA-SAC20240719000291

PATIENT
  Age: 65 Year
  Sex: Female
  Weight: 45.26 kg

DRUGS (1)
  1. DUPIXENT [Suspect]
     Active Substance: DUPILUMAB
     Indication: Asthma
     Dosage: 300 MG, QOW
     Route: 058

REACTIONS (2)
  - Pneumothorax [Recovering/Resolving]
  - Pulmonary valve replacement [Recovering/Resolving]

NARRATIVE: CASE EVENT DATE: 20240401
